FAERS Safety Report 8169843-5 (Version None)
Quarter: 2012Q1

REPORT INFORMATION
  Report Type: 
  Country: None (occurrence: None)
  Receive Date: 20120228
  Receipt Date: 20120223
  Transmission Date: 20120608
  Serious: Yes (Life-Threatening)
  Sender: FDA-Public Use
  Company Number: TH-ROXANE LABORATORIES, INC.-2012-RO-00700RO

PATIENT

DRUGS (7)
  1. SOTALOL HCL [Suspect]
     Indication: ATRIAL FLUTTER
     Dosage: 160 MG
  2. AMIODARONE HCL [Suspect]
     Indication: ATRIAL FLUTTER
     Route: 048
  3. FLECAINIDE ACETATE [Suspect]
     Indication: ATRIAL FLUTTER
     Route: 015
  4. DIGOXIN [Suspect]
     Dosage: 0.5 MG
  5. DIGOXIN [Suspect]
     Indication: ATRIAL FLUTTER
     Route: 015
  6. FLECAINIDE ACETATE [Suspect]
  7. ADENOSINE [Suspect]
     Indication: ATRIAL FLUTTER
     Route: 042

REACTIONS (1)
  - DRUG INEFFECTIVE [None]
